FAERS Safety Report 5580298-7 (Version None)
Quarter: 2007Q4

REPORT INFORMATION
  Report Type: 
  Country: None (occurrence: None)
  Receive Date: 20071130
  Receipt Date: 20070712
  Transmission Date: 20080405
  Serious: No
  Sender: FDA-Public Use
  Company Number: US200707003116

PATIENT
  Sex: Female

DRUGS (3)
  1. BYETTA [Suspect]
     Indication: DIABETES MELLITUS
     Dosage: 10 UG, 2/D
  2. ANTI-DIABETICS [Concomitant]
  3. INSULIN (INSULIN) [Concomitant]

REACTIONS (1)
  - ARTHRALGIA [None]
